FAERS Safety Report 4983244-X (Version None)
Quarter: 2006Q2

REPORT INFORMATION
  Report Type: 
  Country: None (occurrence: None)
  Receive Date: 20060419
  Receipt Date: 20060410
  Transmission Date: 20061013
  Serious: Yes (Death)
  Sender: FDA-Public Use
  Company Number: 2006-04-0655

PATIENT
  Age: 45 Year
  Sex: Female
  Weight: 58 kg

DRUGS (2)
  1. PEG-INTRON [Suspect]
     Indication: HEPATITIS C
     Dosage: 80 MCG SUBCUTANEOUS
     Route: 058
     Dates: start: 20060218, end: 20060305
  2. REBETOL [Suspect]
     Indication: HEPATITIS C
     Dosage: 600 MG ORAL
     Route: 048
     Dates: start: 20060218, end: 20060305

REACTIONS (1)
  - SUBARACHNOID HAEMORRHAGE [None]
